FAERS Safety Report 6314033-1 (Version None)
Quarter: 2009Q3

REPORT INFORMATION
  Report Type: 
  Country: None (occurrence: None)
  Receive Date: 20090818
  Receipt Date: 20090723
  Transmission Date: 20100115
  Serious: Yes (Death, Other)
  Sender: FDA-Public Use
  Company Number: PHHY2009MX34199

PATIENT
  Sex: Male

DRUGS (1)
  1. TRILEPTAL [Suspect]
     Indication: NEUROPATHY PERIPHERAL
     Dosage: 0.5 TABLET (300 MG)/ DAY
     Route: 048
     Dates: start: 20040501

REACTIONS (3)
  - MULTI-ORGAN FAILURE [None]
  - PARANEOPLASTIC SYNDROME [None]
  - THYMOMA MALIGNANT RECURRENT [None]
